FAERS Safety Report 10084219 (Version 2)
Quarter: 2014Q2

REPORT INFORMATION
  Report Type: Spontaneous
  Country: JP (occurrence: JP)
  Receive Date: 20140417
  Receipt Date: 20140502
  Transmission Date: 20141212
  Serious: Yes (Hospitalization)
  Sender: FDA-Public Use
  Company Number: JP-CELGENEUS-087-21660-14042234

PATIENT
  Age: 76 Year
  Sex: Male
  Weight: 50 kg

DRUGS (15)
  1. MEROPENEM HYDRATE [Concomitant]
     Indication: PRODUCT USED FOR UNKNOWN INDICATION
     Dosage: 1.5 GRAM
     Route: 065
     Dates: start: 20140226, end: 20140310
  2. PAZUFLOXACIN MESILATE [Concomitant]
     Indication: PRODUCT USED FOR UNKNOWN INDICATION
     Dosage: 1 GRAM
     Route: 065
     Dates: start: 20140226, end: 20140310
  3. AZITHROMYCIN HYDRATE [Concomitant]
     Indication: PRODUCT USED FOR UNKNOWN INDICATION
     Route: 065
     Dates: start: 20140226, end: 20140226
  4. METHYLPREDNISOLONE [Concomitant]
     Indication: PRODUCT USED FOR UNKNOWN INDICATION
     Dosage: 500 MILLIGRAM
     Route: 065
     Dates: start: 20140227
  5. METHYLPREDNISOLONE [Concomitant]
     Dosage: 80 MILLIGRAM
     Route: 065
     Dates: start: 20140301
  6. METHYLPREDNISOLONE [Concomitant]
     Dosage: 40 MILLIGRAM
     Route: 065
     Dates: start: 20140304
  7. ELASPOL [Concomitant]
     Indication: PRODUCT USED FOR UNKNOWN INDICATION
     Route: 065
     Dates: start: 20140227, end: 20140307
  8. PREDNISOLONE [Concomitant]
     Indication: PRODUCT USED FOR UNKNOWN INDICATION
     Dosage: 50 MILLIGRAM
     Route: 048
     Dates: start: 20140308
  9. PREDNISOLONE [Concomitant]
     Dosage: 40 MILLIGRAM
     Route: 065
     Dates: start: 20140311
  10. PREDNISOLONE [Concomitant]
     Dosage: 30 MILLIGRAM
     Route: 065
     Dates: start: 20140318
  11. SULFAMETHOXAZOLE/TRIMETHOPRIM [Concomitant]
     Indication: PRODUCT USED FOR UNKNOWN INDICATION
     Dosage: 50 MILLIGRAM
     Route: 065
     Dates: start: 20140310
  12. ABRAXANE [Suspect]
     Indication: LUNG NEOPLASM MALIGNANT
     Route: 041
     Dates: start: 20140108, end: 20140219
  13. NIFEDIPINE [Concomitant]
     Indication: HYPERTENSION
     Dosage: 30 MILLIGRAM
     Route: 048
  14. FEBURIC [Concomitant]
     Indication: HYPERURICAEMIA
     Dosage: 10 MILLIGRAM
     Route: 048
  15. LENDORMIN [Concomitant]
     Indication: INSOMNIA
     Dosage: .125 MILLIGRAM
     Route: 048

REACTIONS (1)
  - Interstitial lung disease [Recovering/Resolving]
